FAERS Safety Report 8328204-6 (Version None)
Quarter: 2012Q2

REPORT INFORMATION
  Report Type: 
  Country: None (occurrence: None)
  Receive Date: 20120502
  Receipt Date: 20120425
  Transmission Date: 20120825
  Serious: Yes (Death, Hospitalization, Other)
  Sender: FDA-Public Use
  Company Number: US-PFIZER INC-2012103293

PATIENT
  Age: 57 Year
  Sex: Female

DRUGS (1)
  1. ZOSYN [Suspect]
     Indication: WOUND INFECTION
     Dosage: 4.5 G, UNK
     Dates: start: 20120424

REACTIONS (1)
  - ANAPHYLACTIC REACTION [None]
